FAERS Safety Report 15563540 (Version 1)
Quarter: 2018Q4

REPORT INFORMATION
  Report Type: Spontaneous
  Country: AU (occurrence: AU)
  Receive Date: 20181029
  Receipt Date: 20181029
  Transmission Date: 20190205
  Serious: Yes (Hospitalization)
  Sender: FDA-Public Use
  Company Number: AU-TASMAN PHARMA, INC.-2018TSM00168

PATIENT
  Sex: Female

DRUGS (24)
  1. CLOZAPINE. [Suspect]
     Active Substance: CLOZAPINE
     Dosage: 700 MG
     Dates: start: 20161222, end: 20170418
  2. CLOZAPINE. [Suspect]
     Active Substance: CLOZAPINE
     Dosage: 700 MG
     Dates: start: 20170705, end: 20180213
  3. CLOZAPINE. [Suspect]
     Active Substance: CLOZAPINE
     Dosage: UNK
     Dates: start: 20181009
  4. CLOZAPINE. [Suspect]
     Active Substance: CLOZAPINE
     Dosage: 350 MG
     Dates: start: 20070405, end: 20070405
  5. CLOZAPINE. [Suspect]
     Active Substance: CLOZAPINE
     Dosage: 700 MG
     Dates: start: 20070406, end: 20070531
  6. CLOZAPINE. [Suspect]
     Active Substance: CLOZAPINE
     Dosage: 700 MG
     Dates: start: 20180316, end: 20180501
  7. PAIN MEDICATION [Concomitant]
     Active Substance: UNSPECIFIED INGREDIENT
  8. CLOZAPINE. [Suspect]
     Active Substance: CLOZAPINE
     Dosage: 700 MG
     Dates: start: 20090414, end: 20090608
  9. CLOZAPINE. [Suspect]
     Active Substance: CLOZAPINE
     Dosage: 700 MG
     Dates: start: 20160817, end: 20161221
  10. CLOZAPINE. [Suspect]
     Active Substance: CLOZAPINE
     Dosage: 600 MG
     Dates: start: 20030409, end: 20031021
  11. CLOZAPINE. [Suspect]
     Active Substance: CLOZAPINE
     Dosage: 700 MG
     Dates: start: 20151221, end: 20160816
  12. CLOZAPINE. [Suspect]
     Active Substance: CLOZAPINE
     Dosage: 725 MG
     Dates: start: 20090609, end: 20100118
  13. CLOZAPINE. [Suspect]
     Active Substance: CLOZAPINE
     Dosage: 700 MG
     Dates: start: 20180502, end: 20181007
  14. CLOZAPINE. [Suspect]
     Active Substance: CLOZAPINE
     Dosage: 600 MG
     Dates: start: 20031022, end: 20040502
  15. CLOZAPINE. [Suspect]
     Active Substance: CLOZAPINE
     Dosage: 700 MG
     Dates: start: 20040503, end: 20070404
  16. CLOZAPINE. [Suspect]
     Active Substance: CLOZAPINE
     Dosage: 700 MG
     Dates: start: 20170419, end: 20170704
  17. CLOZAPINE. [Suspect]
     Active Substance: CLOZAPINE
     Dosage: UNK
     Dates: start: 19950915, end: 20030408
  18. CLOZAPINE. [Suspect]
     Active Substance: CLOZAPINE
     Dosage: 100 MG
     Dates: start: 20180214, end: 20180218
  19. CLOZAPINE. [Suspect]
     Active Substance: CLOZAPINE
     Dosage: 700 MG
     Dates: start: 20070628, end: 20090413
  20. CLOZAPINE. [Suspect]
     Active Substance: CLOZAPINE
     Dosage: 700 MG
     Dates: start: 20100119, end: 20131007
  21. CLOZAPINE. [Suspect]
     Active Substance: CLOZAPINE
     Dosage: 600 MG
     Dates: start: 20131008, end: 20131029
  22. CLOZAPINE. [Suspect]
     Active Substance: CLOZAPINE
     Dosage: 700 MG
     Dates: start: 20070531, end: 20070627
  23. CLOZAPINE. [Suspect]
     Active Substance: CLOZAPINE
     Dosage: 700 MG
     Dates: start: 20131030, end: 20151220
  24. CLOZAPINE. [Suspect]
     Active Substance: CLOZAPINE
     Dosage: 200 MG
     Dates: start: 20180219, end: 20180315

REACTIONS (2)
  - Fracture [Unknown]
  - Product dose omission [Recovered/Resolved]

NARRATIVE: CASE EVENT DATE: 201810
